FAERS Safety Report 17089343 (Version 2)
Quarter: 2020Q4

REPORT INFORMATION
  Report Type: Report from Study
  Country: US (occurrence: US)
  Receive Date: 20191128
  Receipt Date: 20201010
  Transmission Date: 20210113
  Serious: Yes (Hospitalization, Other)
  Sender: FDA-Public Use
  Company Number: US-TAKEDA-2018TUS030663

PATIENT
  Sex: Female

DRUGS (1)
  1. PONATINIB [Suspect]
     Active Substance: PONATINIB
     Indication: CHRONIC MYELOID LEUKAEMIA
     Dosage: 30 MILLIGRAM, QD
     Route: 048
     Dates: start: 201402

REACTIONS (9)
  - Hypoaesthesia [Unknown]
  - Hypertension [Recovering/Resolving]
  - Cardiac disorder [Recovering/Resolving]
  - Cough [Unknown]
  - Paraesthesia [Unknown]
  - Product dose omission issue [Unknown]
  - Peripheral arterial occlusive disease [Unknown]
  - Nasopharyngitis [Unknown]
  - Laryngitis [Unknown]
